FAERS Safety Report 8885829 (Version 1)
Quarter: 2012Q4

REPORT INFORMATION
  Report Type: 
  Country: GB (occurrence: GB)
  Receive Date: 20121105
  Receipt Date: 20121105
  Transmission Date: 20130627
  Serious: Yes (Other)
  Sender: FDA-Public Use
  Company Number: GB-ELI_LILLY_AND_COMPANY-GB201210006843

PATIENT
  Age: 9 Year
  Sex: Male
  Weight: 47.9 kg

DRUGS (2)
  1. STRATTERA [Suspect]
     Dosage: 18 mg, UNK
     Route: 048
     Dates: start: 20120927, end: 20121005
  2. EQUASYM [Concomitant]
     Dosage: 10 mg, UNK

REACTIONS (4)
  - Syncope [Recovered/Resolved]
  - Pallor [Recovered/Resolved]
  - Dizziness [Recovered/Resolved]
  - Headache [Recovered/Resolved]
